FAERS Safety Report 9656367 (Version 1)
Quarter: 2013Q4

REPORT INFORMATION
  Report Type: Spontaneous
  Country: CH (occurrence: CH)
  Receive Date: 20131030
  Receipt Date: 20131030
  Transmission Date: 20140711
  Serious: Yes (Hospitalization)
  Sender: FDA-Public Use
  Company Number: CH-JNJFOC-20131016853

PATIENT
  Age: 77 Year
  Sex: Male

DRUGS (12)
  1. XARELTO [Suspect]
     Indication: ATRIAL FLUTTER
     Route: 048
     Dates: start: 20130328, end: 20130924
  2. XARELTO [Suspect]
     Indication: ATRIAL FIBRILLATION
     Route: 048
     Dates: start: 20130328, end: 20130924
  3. HYALURONATE SODIUM [Concomitant]
     Route: 047
  4. CIPRALEX [Concomitant]
     Route: 048
  5. REMINYL [Concomitant]
     Route: 048
  6. PRADIF [Concomitant]
     Route: 048
     Dates: end: 201309
  7. VITAMIN B12 [Concomitant]
     Route: 058
  8. JANUVIA [Concomitant]
     Route: 048
  9. PANTOZOL [Concomitant]
     Route: 048
  10. BELOC (METOPROLOL TARTRATE) [Concomitant]
     Route: 048
  11. TRIATEC [Concomitant]
     Route: 048
  12. MOVICOL [Concomitant]
     Route: 048

REACTIONS (5)
  - Pancytopenia [Not Recovered/Not Resolved]
  - Dizziness [Recovered/Resolved]
  - Nausea [Recovered/Resolved]
  - Vomiting [Recovered/Resolved]
  - Cerebral haemorrhage [Recovered/Resolved]
